FAERS Safety Report 5211971-8 (Version None)
Quarter: 2007Q1

REPORT INFORMATION
  Report Type: 
  Country: None (occurrence: None)
  Receive Date: 20070118
  Receipt Date: 20070117
  Transmission Date: 20070707
  Serious: Yes (Other)
  Sender: FDA-Public Use
  Company Number: US-GLAXOSMITHKLINE-A0635995A

PATIENT
  Age: 55 Year
  Sex: Female

DRUGS (7)
  1. AVANDIA [Suspect]
     Dosage: 2MG TWICE PER DAY
     Route: 048
  2. GLYBURIDE [Concomitant]
  3. METFORMIN [Concomitant]
  4. ALBUTEROL [Concomitant]
  5. LISINOPRIL [Concomitant]
  6. TOPROL-XL [Concomitant]
  7. FUROSEMIDE [Concomitant]

REACTIONS (6)
  - ANAEMIA [None]
  - HYPOGLYCAEMIA [None]
  - OEDEMA PERIPHERAL [None]
  - SENSATION OF PRESSURE [None]
  - VISION BLURRED [None]
  - WEIGHT INCREASED [None]
